FAERS Safety Report 6519838-X (Version None)
Quarter: 2009Q4

REPORT INFORMATION
  Report Type: 
  Country: None (occurrence: None)
  Receive Date: 20091228
  Receipt Date: 20091228
  Transmission Date: 20100525
  Serious: Yes (Other)
  Sender: FDA-Public Use
  Company Number: None

PATIENT
  Sex: Female
  Weight: 81.6475 kg

DRUGS (1)
  1. ZYCAM NASAL SWABS [Suspect]
     Indication: NASOPHARYNGITIS
     Dosage: 1 NASAL SWAB 3-4 X DAY NASAL
     Route: 045
     Dates: start: 20081227, end: 20090103

REACTIONS (2)
  - ANOSMIA [None]
  - HYPOSMIA [None]
